FAERS Safety Report 5383437-6 (Version None)
Quarter: 2007Q3

REPORT INFORMATION
  Report Type: 
  Country: None (occurrence: None)
  Receive Date: 20070706
  Receipt Date: 20070625
  Transmission Date: 20080115
  Serious: Yes (Other)
  Sender: FDA-Public Use
  Company Number: 16757

PATIENT
  Age: 62 Year
  Sex: Female

DRUGS (8)
  1. CARBOPLATIN [Suspect]
     Indication: OVARIAN EPITHELIAL CANCER STAGE III
     Dosage: 6 AUC Q21DAYS OTHER
     Dates: start: 20030301, end: 20030801
  2. CARBOPLATIN [Suspect]
     Indication: OVARIAN EPITHELIAL CANCER STAGE III
     Dosage: 6 AUC Q21DAYS OTHER
     Dates: start: 20050901, end: 20060127
  3. PACLITAXEL [Suspect]
     Indication: OVARIAN EPITHELIAL CANCER STAGE III
     Dosage: 175 MG/M2 Q21DAYS IV
     Route: 042
     Dates: start: 20030301, end: 20030801
  4. PACLITAXEL [Suspect]
     Indication: OVARIAN EPITHELIAL CANCER STAGE III
     Dosage: 175 MG/M2 Q21DAYS IV
     Route: 042
     Dates: start: 20050901, end: 20060127
  5. DEXAMETHASONE 0.5MG TAB [Concomitant]
  6. ONDANSETRON [Concomitant]
  7. DEXCHLORPHENIRAMINE [Concomitant]
  8. RANITIDINE [Concomitant]

REACTIONS (16)
  - ALOPECIA [None]
  - ARTHRALGIA [None]
  - BLOOD PRESSURE DECREASED [None]
  - BRONCHOSPASM [None]
  - CONVULSION [None]
  - DIZZINESS [None]
  - DRUG HYPERSENSITIVITY [None]
  - DRUG TOXICITY [None]
  - INFUSION RELATED REACTION [None]
  - LOSS OF CONSCIOUSNESS [None]
  - MUCOSAL INFLAMMATION [None]
  - NAIL DISORDER [None]
  - NEUROPATHY PERIPHERAL [None]
  - NEUROTOXICITY [None]
  - RESPIRATORY ARREST [None]
  - RESPIRATORY FAILURE [None]
